FAERS Safety Report 7206350-8 (Version None)
Quarter: 2010Q4

REPORT INFORMATION
  Report Type: 
  Country: None (occurrence: None)
  Receive Date: 20101217
  Receipt Date: 20101130
  Transmission Date: 20110411
  Serious: Yes (Other)
  Sender: FDA-Public Use
  Company Number: 7029888

PATIENT
  Age: 58 Year
  Sex: Female

DRUGS (5)
  1. LEVOTHYROXINE SODIUM [Suspect]
     Indication: THYROID CANCER
     Dosage: ORAL
     Route: 048
  2. ACUILIX (ACUILIX QUINAPRIL) [Concomitant]
  3. MONOTILDIEM (DILTIAZEM) (DILTIAZEM) [Concomitant]
  4. PRAZEPAM [Concomitant]
  5. CRESTOR [Concomitant]

REACTIONS (4)
  - FATIGUE [None]
  - LOSS OF CONSCIOUSNESS [None]
  - MALAISE [None]
  - PRESYNCOPE [None]
